FAERS Safety Report 5522596-9 (Version None)
Quarter: 2007Q4

REPORT INFORMATION
  Report Type: 
  Country: None (occurrence: None)
  Receive Date: 20071120
  Receipt Date: 20071108
  Transmission Date: 20080405
  Serious: Yes (Other)
  Sender: FDA-Public Use
  Company Number: GB-PFIZER INC-2007095286

PATIENT
  Age: 73 Year
  Sex: Male
  Weight: 127 kg

DRUGS (23)
  1. LYRICA [Suspect]
     Indication: NEUROPATHY
     Route: 048
     Dates: start: 20060515, end: 20060522
  2. SYMBICORT [Concomitant]
  3. ACETYLSALICYLIC ACID SRT [Concomitant]
  4. CANDESARTAN CILEXETIL [Concomitant]
  5. CARBAMAZEPINE [Concomitant]
  6. CO-CODAMOL [Concomitant]
  7. CORACTEN [Concomitant]
  8. DOSULEPIN [Concomitant]
  9. DOXAZOSIN MESYLATE [Concomitant]
  10. ENALAPRIL MALEATE [Concomitant]
  11. FUROSEMIDE [Concomitant]
  12. GLICLAZIDE [Concomitant]
  13. GLYTRIN [Concomitant]
  14. INDAPAMIDE [Concomitant]
  15. IPRATROPIUM BROMIDE [Concomitant]
  16. LANTUS [Concomitant]
  17. LEVOTHYROXINE SODIUM [Concomitant]
  18. METFORMIN HYDROCHLORIDE [Concomitant]
  19. PARACETAMOL [Concomitant]
  20. QUININE BISULFATE [Concomitant]
  21. ALBUTEROL [Concomitant]
  22. SIMVASTATIN [Concomitant]
  23. SPIRIVA [Concomitant]

REACTIONS (1)
  - ASPARTATE AMINOTRANSFERASE INCREASED [None]
